FAERS Safety Report 6841284-X (Version None)
Quarter: 2010Q3

REPORT INFORMATION
  Report Type: 
  Country: None (occurrence: None)
  Receive Date: 20100714
  Receipt Date: 20070811
  Transmission Date: 20110219
  Serious: No
  Sender: FDA-Public Use
  Company Number: US-PFIZER INC-2007051333

PATIENT
  Sex: Female
  Weight: 68 kg

DRUGS (3)
  1. CHANTIX [Suspect]
     Indication: SMOKING CESSATION THERAPY
     Dates: start: 20070615
  2. AMBIEN [Concomitant]
     Indication: SLEEP DISORDER
  3. EFFEXOR [Concomitant]

REACTIONS (6)
  - ABNORMAL DREAMS [None]
  - DECREASED APPETITE [None]
  - FEELING ABNORMAL [None]
  - MALAISE [None]
  - NAUSEA [None]
  - SLEEP DISORDER [None]
